FAERS Safety Report 8920424 (Version 1)
Quarter: 2012Q4

REPORT INFORMATION
  Report Type: 
  Country: CH (occurrence: CH)
  Receive Date: 20121121
  Receipt Date: 20121121
  Transmission Date: 20130627
  Serious: Yes (Hospitalization, Other)
  Sender: FDA-Public Use
  Company Number: CH-ROCHE-1155605

PATIENT
  Sex: Female

DRUGS (6)
  1. MABTHERA [Suspect]
     Indication: RHEUMATOID ARTHRITIS
     Route: 042
     Dates: start: 201009
  2. PRAVALOTIN [Concomitant]
     Route: 065
  3. SPIRICORT [Concomitant]
     Route: 065
  4. ASPIRIN CARDIO [Concomitant]
     Route: 065
  5. FORSTEO [Concomitant]
     Route: 065
  6. CALPEROS [Concomitant]
     Route: 065

REACTIONS (4)
  - Gastrointestinal infection [Recovered/Resolved]
  - Otitis media [Recovered/Resolved]
  - Deafness [Recovered/Resolved]
  - Bacteriuria [Unknown]
